FAERS Safety Report 18080871 (Version 1)
Quarter: 2020Q3

REPORT INFORMATION
  Report Type: Spontaneous
  Country: US (occurrence: US)
  Receive Date: 20200728
  Receipt Date: 20200728
  Transmission Date: 20201103
  Serious: Yes (Hospitalization)
  Sender: FDA-Public Use
  Company Number: US-SEBELA IRELAND LIMITED-2020SEB00091

PATIENT
  Age: 46 Year
  Sex: Female

DRUGS (5)
  1. PRALIDOXIME [Concomitant]
     Active Substance: PRALIDOXIME
     Indication: CHEMICAL POISONING
     Dosage: 2 G
     Route: 042
  2. PRALIDOXIME [Concomitant]
     Active Substance: PRALIDOXIME
     Dosage: 1 G, 3X/DAY FOR 4 DAYS
     Route: 065
  3. ATROPINE. [Suspect]
     Active Substance: ATROPINE
     Indication: CHEMICAL POISONING
     Dosage: 1.8 MG, LOADING DOSE
     Route: 042
  4. ATROPINE. [Suspect]
     Active Substance: ATROPINE
     Dosage: 10.2 MG, 1X/DAY
     Route: 065
  5. ATROPINE. [Suspect]
     Active Substance: ATROPINE
     Dosage: 2 MG
     Route: 065

REACTIONS (1)
  - Psychotic disorder [Recovered/Resolved]
